FAERS Safety Report 11440839 (Version 1)
Quarter: 2015Q3

REPORT INFORMATION
  Report Type: Spontaneous
  Country: US (occurrence: US)
  Receive Date: 20150821
  Receipt Date: 20150821
  Transmission Date: 20151125
  Serious: Yes (Other)
  Sender: FDA-Public Use
  Company Number: US-ELI_LILLY_AND_COMPANY-US200710000857

PATIENT
  Age: 24 Year
  Sex: Female
  Weight: 56.24 kg

DRUGS (5)
  1. CYMBALTA [Suspect]
     Active Substance: DULOXETINE HYDROCHLORIDE
     Dosage: 60 MG, UNK
  2. ALCOHOL. [Concomitant]
     Active Substance: ALCOHOL
     Dates: start: 200709
  3. CYMBALTA [Suspect]
     Active Substance: DULOXETINE HYDROCHLORIDE
     Indication: DEPRESSION
     Dosage: 30 MG, UNK
     Dates: start: 20070907
  4. VALIUM [Concomitant]
     Active Substance: DIAZEPAM
     Dosage: UNK, AS NEEDED
  5. PERCOCET [Concomitant]
     Active Substance: ACETAMINOPHEN\OXYCODONE HYDROCHLORIDE

REACTIONS (22)
  - Headache [Unknown]
  - Mydriasis [Recovering/Resolving]
  - Dry mouth [Recovering/Resolving]
  - Dizziness [Unknown]
  - Job change [Unknown]
  - Exophthalmos [Recovering/Resolving]
  - Hot flush [Unknown]
  - Gait disturbance [Recovering/Resolving]
  - Crying [Unknown]
  - Agoraphobia [Unknown]
  - Decreased appetite [Unknown]
  - Suicide attempt [Recovering/Resolving]
  - Self injurious behaviour [Unknown]
  - Depression [Unknown]
  - Aggression [Recovering/Resolving]
  - Insomnia [Recovering/Resolving]
  - Fear [Recovering/Resolving]
  - Fatigue [Unknown]
  - Burning sensation [Recovering/Resolving]
  - Incoherent [Recovering/Resolving]
  - Memory impairment [Unknown]
  - Agitation [Recovering/Resolving]

NARRATIVE: CASE EVENT DATE: 200709
